FAERS Safety Report 15869887 (Version 2)
Quarter: 2019Q1

REPORT INFORMATION
  Report Type: Report from Study
  Country: CA (occurrence: CA)
  Receive Date: 20190125
  Receipt Date: 20190201
  Transmission Date: 20190417
  Serious: Yes (Death)
  Sender: FDA-Public Use
  Company Number: CA-HLSUS-2019-CA-000080

PATIENT
  Age: 63 Year
  Sex: Male

DRUGS (3)
  1. TRAZODONE [Concomitant]
     Active Substance: TRAZODONE HYDROCHLORIDE
     Indication: RESTLESSNESS
     Dosage: 100 MG THRICE DAILY
     Route: 048
     Dates: start: 20180822, end: 20181209
  2. CLOZARIL [Suspect]
     Active Substance: CLOZAPINE
     Indication: PSYCHOTIC DISORDER
     Dosage: 200 MG
     Route: 048
     Dates: start: 20180720, end: 20181209
  3. CLONAZEPAM. [Concomitant]
     Active Substance: CLONAZEPAM
     Indication: ANXIETY
     Dosage: 0.25 MG TWICE DAILY
     Route: 048
     Dates: start: 20180822, end: 20181209

REACTIONS (6)
  - Pyrexia [Unknown]
  - Delirium [Unknown]
  - Pneumonia aspiration [Fatal]
  - Seizure [Fatal]
  - Hypophagia [Unknown]
  - Depressed level of consciousness [Unknown]

NARRATIVE: CASE EVENT DATE: 20181128
